FAERS Safety Report 25235490 (Version 2)
Quarter: 2025Q2

REPORT INFORMATION
  Report Type: Spontaneous
  Country: TW (occurrence: TW)
  Receive Date: 20250424
  Receipt Date: 20250603
  Transmission Date: 20250716
  Serious: Yes (Hospitalization, Other)
  Sender: PFIZER
  Company Number: TW-PFIZER INC-PV202500047754

PATIENT
  Age: 28 Year
  Sex: Male
  Weight: 56 kg

DRUGS (9)
  1. SOLU-MEDROL [Suspect]
     Active Substance: METHYLPREDNISOLONE SODIUM SUCCINATE
     Indication: Alopecia areata
     Dosage: 250 MG, 2X/DAY (6 DOSES)
     Route: 041
     Dates: start: 20211029, end: 20211101
  2. SOLU-MEDROL [Suspect]
     Active Substance: METHYLPREDNISOLONE SODIUM SUCCINATE
     Dosage: 250 MG, 2X/DAY (6 DOSES)
     Route: 041
     Dates: start: 20211203, end: 20211206
  3. SOLU-MEDROL [Suspect]
     Active Substance: METHYLPREDNISOLONE SODIUM SUCCINATE
     Dosage: 250 MG, 2X/DAY (6 DOSES)
     Route: 041
     Dates: start: 20220107, end: 20220110
  4. SOLU-MEDROL [Suspect]
     Active Substance: METHYLPREDNISOLONE SODIUM SUCCINATE
     Dosage: 250 MG, 2X/DAY (6 DOSES)
     Route: 041
     Dates: start: 20220211, end: 20220214
  5. SOLU-MEDROL [Suspect]
     Active Substance: METHYLPREDNISOLONE SODIUM SUCCINATE
     Dosage: 250 MG, 2X/DAY (6 DOSES)
     Route: 041
     Dates: start: 20220311, end: 20220314
  6. SOLU-MEDROL [Suspect]
     Active Substance: METHYLPREDNISOLONE SODIUM SUCCINATE
     Dosage: 250 MG, 2X/DAY (6 DOSES)
     Route: 041
     Dates: start: 20220408, end: 20220411
  7. TRAZODONE HYDROCHLORIDE [Concomitant]
     Active Substance: TRAZODONE HYDROCHLORIDE
     Indication: Depression
     Dosage: 50 MG, 1X/DAY
     Route: 048
     Dates: start: 20211126, end: 20230529
  8. XANAX [Concomitant]
     Active Substance: ALPRAZOLAM
     Indication: Insomnia
     Dosage: 0.25 MG, 1X/DAY
     Route: 048
     Dates: start: 20211026, end: 20220211
  9. XANAX [Concomitant]
     Active Substance: ALPRAZOLAM
     Indication: Depression
     Dosage: 0.25 MG, 1X/DAY
     Route: 048
     Dates: start: 20220225, end: 20230529

REACTIONS (7)
  - Osteonecrosis [Recovered/Resolved with Sequelae]
  - Arthralgia [Recovered/Resolved with Sequelae]
  - Depression [Unknown]
  - Abdominal discomfort [Unknown]
  - Pain [Unknown]
  - Off label use [Unknown]
  - Drug effective for unapproved indication [Unknown]

NARRATIVE: CASE EVENT DATE: 20211029
